FAERS Safety Report 6288288-6 (Version None)
Quarter: 2009Q3

REPORT INFORMATION
  Report Type: 
  Country: None (occurrence: None)
  Receive Date: 20090729
  Receipt Date: 20090721
  Transmission Date: 20100115
  Serious: Yes (Hospitalization, Other)
  Sender: FDA-Public Use
  Company Number: NZ-PFIZER INC-2009225665

PATIENT

DRUGS (1)
  1. SUTENT [Suspect]
     Indication: RENAL CELL CARCINOMA
     Dosage: 50 MG, 1X/DAY, FOUR WEEKS ON TWO WEEKS OFF
     Route: 048
     Dates: start: 20090316, end: 20090501

REACTIONS (1)
  - IDIOPATHIC THROMBOCYTOPENIC PURPURA [None]
